FAERS Safety Report 7381850-9 (Version None)
Quarter: 2011Q1

REPORT INFORMATION
  Report Type: 
  Country: None (occurrence: None)
  Receive Date: 20110329
  Receipt Date: 20110323
  Transmission Date: 20110831
  Serious: Yes (Other)
  Sender: FDA-Public Use
  Company Number: US-PFIZER INC-2011065618

PATIENT
  Sex: Male

DRUGS (1)
  1. NEURONTIN [Suspect]
     Indication: NEUROPATHY PERIPHERAL
     Dosage: 4 CAPSULES OF 300 MG THREE TIMES, 3X/DAY
     Dates: start: 19910101

REACTIONS (2)
  - LEG AMPUTATION [None]
  - DRUG INEFFECTIVE [None]
